FAERS Safety Report 23558200 (Version 4)
Quarter: 2025Q1

REPORT INFORMATION
  Report Type: Report from Study
  Country: JP (occurrence: JP)
  Receive Date: 20240223
  Receipt Date: 20250115
  Transmission Date: 20250409
  Serious: Yes (Hospitalization, Other)
  Sender: ALEXION PHARMACEUTICALS
  Company Number: 2024A041837

PATIENT
  Age: 77 Year
  Weight: 51 kg

DRUGS (84)
  1. TEZEPELUMAB [Suspect]
     Active Substance: TEZEPELUMAB
     Indication: Asthma
     Dosage: 210 MILLIGRAM, Q4W
  2. TEZEPELUMAB [Suspect]
     Active Substance: TEZEPELUMAB
     Dosage: 210 MILLIGRAM, Q4W
     Route: 058
  3. TEZEPELUMAB [Suspect]
     Active Substance: TEZEPELUMAB
     Dosage: 210 MILLIGRAM, Q4W
  4. TEZEPELUMAB [Suspect]
     Active Substance: TEZEPELUMAB
     Dosage: 210 MILLIGRAM, Q4W
     Route: 058
  5. GLYCOPYRROLATE\INDACATEROL\MOMETASONE FUROATE [Suspect]
     Active Substance: GLYCOPYRROLATE\INDACATEROL\MOMETASONE FUROATE
     Indication: Asthma
     Dosage: 1 DOSAGE FORM, QD
     Route: 055
  6. GLYCOPYRROLATE\INDACATEROL\MOMETASONE FUROATE [Suspect]
     Active Substance: GLYCOPYRROLATE\INDACATEROL\MOMETASONE FUROATE
     Dosage: 1 DOSAGE FORM, QD
  7. BRONCHODIL [Concomitant]
     Indication: Asthma
  8. BRONCHODIL [Concomitant]
  9. BRONCHODIL [Concomitant]
  10. BRONCHODIL [Concomitant]
  11. BRONCHODIL [Concomitant]
  12. BRONCHODIL [Concomitant]
  13. BRONCHODIL [Concomitant]
  14. BRONCHODIL [Concomitant]
  15. PREDONINE [Concomitant]
     Active Substance: PREDNISOLONE
     Indication: Asthma
  16. PREDONINE [Concomitant]
     Active Substance: PREDNISOLONE
     Indication: Asthma
     Route: 048
  17. PREDONINE [Concomitant]
     Active Substance: PREDNISOLONE
  18. PREDONINE [Concomitant]
     Active Substance: PREDNISOLONE
     Route: 048
  19. PREDONINE [Concomitant]
     Active Substance: PREDNISOLONE
  20. PREDONINE [Concomitant]
     Active Substance: PREDNISOLONE
     Route: 048
  21. PREDONINE [Concomitant]
     Active Substance: PREDNISOLONE
  22. PREDONINE [Concomitant]
     Active Substance: PREDNISOLONE
     Route: 048
  23. PREDONINE [Concomitant]
     Active Substance: PREDNISOLONE
  24. PREDONINE [Concomitant]
     Active Substance: PREDNISOLONE
     Route: 048
  25. LORATADINE [Concomitant]
     Active Substance: LORATADINE
     Indication: Asthma
  26. LORATADINE [Concomitant]
     Active Substance: LORATADINE
     Route: 048
  27. LORATADINE [Concomitant]
     Active Substance: LORATADINE
  28. LORATADINE [Concomitant]
     Active Substance: LORATADINE
     Route: 048
  29. PITAVASTATIN CALCIUM [Concomitant]
     Active Substance: PITAVASTATIN CALCIUM
     Indication: Asthma
     Route: 048
  30. PITAVASTATIN CALCIUM [Concomitant]
     Active Substance: PITAVASTATIN CALCIUM
  31. LANSOPRAZOLE [Concomitant]
     Active Substance: LANSOPRAZOLE
     Indication: Gastrooesophageal reflux disease
     Route: 048
  32. LANSOPRAZOLE [Concomitant]
     Active Substance: LANSOPRAZOLE
  33. AMBROXOL HYDROCHLORIDE [Concomitant]
     Active Substance: AMBROXOL HYDROCHLORIDE
     Indication: Asthma
     Dosage: AFTER EACH MEAL
  34. AMBROXOL HYDROCHLORIDE [Concomitant]
     Active Substance: AMBROXOL HYDROCHLORIDE
     Dosage: AFTER EACH MEAL
     Route: 048
  35. AMBROXOL HYDROCHLORIDE [Concomitant]
     Active Substance: AMBROXOL HYDROCHLORIDE
     Dosage: AFTER EACH MEAL
  36. AMBROXOL HYDROCHLORIDE [Concomitant]
     Active Substance: AMBROXOL HYDROCHLORIDE
     Dosage: AFTER EACH MEAL
     Route: 048
  37. CARBOCYSTEINE [Concomitant]
     Active Substance: CARBOCYSTEINE
     Indication: Asthma
     Dosage: AFTER EACH MEAL
  38. CARBOCYSTEINE [Concomitant]
     Active Substance: CARBOCYSTEINE
     Dosage: AFTER EACH MEAL
     Route: 048
  39. CARBOCYSTEINE [Concomitant]
     Active Substance: CARBOCYSTEINE
     Dosage: AFTER EACH MEAL
  40. CARBOCYSTEINE [Concomitant]
     Active Substance: CARBOCYSTEINE
     Dosage: AFTER EACH MEAL
     Route: 048
  41. ELDECALCITOL [Concomitant]
     Active Substance: ELDECALCITOL
     Indication: Osteoporosis
     Dosage: AFTER BREAKFAST
     Route: 048
  42. ELDECALCITOL [Concomitant]
     Active Substance: ELDECALCITOL
     Dosage: AFTER BREAKFAST
  43. ELDECALCITOL [Concomitant]
     Active Substance: ELDECALCITOL
     Dosage: AFTER BREAKFAST
  44. ELDECALCITOL [Concomitant]
     Active Substance: ELDECALCITOL
     Dosage: AFTER BREAKFAST
     Route: 048
  45. ELDECALCITOL [Concomitant]
     Active Substance: ELDECALCITOL
     Dosage: AFTER BREAKFAST
     Route: 048
  46. ELDECALCITOL [Concomitant]
     Active Substance: ELDECALCITOL
     Dosage: AFTER BREAKFAST
  47. ELDECALCITOL [Concomitant]
     Active Substance: ELDECALCITOL
     Dosage: AFTER BREAKFAST
     Route: 048
  48. ELDECALCITOL [Concomitant]
     Active Substance: ELDECALCITOL
     Dosage: AFTER BREAKFAST
  49. ELDECALCITOL [Concomitant]
     Active Substance: ELDECALCITOL
     Dosage: AFTER BREAKFAST
     Route: 048
  50. ELDECALCITOL [Concomitant]
     Active Substance: ELDECALCITOL
     Dosage: AFTER BREAKFAST
  51. ELDECALCITOL [Concomitant]
     Active Substance: ELDECALCITOL
     Dosage: AFTER BREAKFAST
     Route: 048
  52. ELDECALCITOL [Concomitant]
     Active Substance: ELDECALCITOL
     Dosage: AFTER BREAKFAST
  53. ELDECALCITOL [Concomitant]
     Active Substance: ELDECALCITOL
     Dosage: AFTER BREAKFAST
  54. ELDECALCITOL [Concomitant]
     Active Substance: ELDECALCITOL
     Dosage: AFTER BREAKFAST
     Route: 048
  55. ELDECALCITOL [Concomitant]
     Active Substance: ELDECALCITOL
     Dosage: AFTER BREAKFAST
     Route: 048
  56. ELDECALCITOL [Concomitant]
     Active Substance: ELDECALCITOL
     Dosage: AFTER BREAKFAST
  57. CYANOCOBALAMIN [Concomitant]
     Active Substance: CYANOCOBALAMIN
     Indication: Asthenopia
     Route: 047
  58. CYANOCOBALAMIN [Concomitant]
     Active Substance: CYANOCOBALAMIN
  59. CYANOCOBALAMIN [Concomitant]
     Active Substance: CYANOCOBALAMIN
  60. CYANOCOBALAMIN [Concomitant]
     Active Substance: CYANOCOBALAMIN
     Route: 047
  61. CYANOCOBALAMIN [Concomitant]
     Active Substance: CYANOCOBALAMIN
  62. CYANOCOBALAMIN [Concomitant]
     Active Substance: CYANOCOBALAMIN
     Route: 047
  63. CYANOCOBALAMIN [Concomitant]
     Active Substance: CYANOCOBALAMIN
     Route: 047
  64. CYANOCOBALAMIN [Concomitant]
     Active Substance: CYANOCOBALAMIN
  65. LORATADINE [Concomitant]
     Active Substance: LORATADINE
     Indication: Asthma
     Dosage: AFTER DINNER
     Route: 048
  66. LORATADINE [Concomitant]
     Active Substance: LORATADINE
     Dosage: AFTER DINNER
  67. PITAVASTATIN CALCIUM [Concomitant]
     Active Substance: PITAVASTATIN CALCIUM
     Indication: Hyperlipidaemia
     Dosage: AFTER DINNER
     Route: 048
  68. PITAVASTATIN CALCIUM [Concomitant]
     Active Substance: PITAVASTATIN CALCIUM
     Dosage: AFTER DINNER
  69. LANSOPRAZOLE [Concomitant]
     Active Substance: LANSOPRAZOLE
     Indication: Gastrooesophageal reflux disease
     Dosage: AFTER BREAKFAST
     Route: 048
  70. LANSOPRAZOLE [Concomitant]
     Active Substance: LANSOPRAZOLE
     Dosage: AFTER BREAKFAST
  71. ZOLPIDEM TARTRATE [Concomitant]
     Active Substance: ZOLPIDEM TARTRATE
     Indication: Insomnia
     Dosage: BEFORE SLEEP
     Route: 048
  72. ZOLPIDEM TARTRATE [Concomitant]
     Active Substance: ZOLPIDEM TARTRATE
     Dosage: BEFORE SLEEP
  73. INDACATEROL ACETATE\MOMETASONE FUROATE [Concomitant]
     Active Substance: INDACATEROL ACETATE\MOMETASONE FUROATE
     Indication: Asthma
  74. INDACATEROL ACETATE\MOMETASONE FUROATE [Concomitant]
     Active Substance: INDACATEROL ACETATE\MOMETASONE FUROATE
     Route: 055
  75. INDACATEROL ACETATE\MOMETASONE FUROATE [Concomitant]
     Active Substance: INDACATEROL ACETATE\MOMETASONE FUROATE
  76. INDACATEROL ACETATE\MOMETASONE FUROATE [Concomitant]
     Active Substance: INDACATEROL ACETATE\MOMETASONE FUROATE
     Route: 055
  77. LORATADINE [Concomitant]
     Active Substance: LORATADINE
     Indication: Asthma
     Dosage: AFTER DINNER
     Route: 048
  78. LORATADINE [Concomitant]
     Active Substance: LORATADINE
     Dosage: AFTER DINNER
  79. PITAVASTATIN CALCIUM [Concomitant]
     Active Substance: PITAVASTATIN CALCIUM
     Indication: Hyperlipidaemia
     Dosage: AFTER DINNER
     Route: 048
  80. PITAVASTATIN CALCIUM [Concomitant]
     Active Substance: PITAVASTATIN CALCIUM
     Dosage: AFTER DINNER
  81. LANSOPRAZOLE [Concomitant]
     Active Substance: LANSOPRAZOLE
     Indication: Gastrooesophageal reflux disease
     Dosage: AFTER BREAKFAST
     Route: 048
  82. LANSOPRAZOLE [Concomitant]
     Active Substance: LANSOPRAZOLE
     Dosage: AFTER BREAKFAST
  83. ZOLPIDEM TARTRATE [Concomitant]
     Active Substance: ZOLPIDEM TARTRATE
     Indication: Insomnia
     Dosage: BEFORE SLEEP
     Route: 048
  84. ZOLPIDEM TARTRATE [Concomitant]
     Active Substance: ZOLPIDEM TARTRATE
     Dosage: BEFORE SLEEP

REACTIONS (3)
  - Pneumonia bacterial [Recovering/Resolving]
  - Asthma [Recovering/Resolving]
  - Pneumonia [Recovered/Resolved]
